FAERS Safety Report 6301859-3 (Version None)
Quarter: 2009Q3

REPORT INFORMATION
  Report Type: 
  Country: None (occurrence: None)
  Receive Date: 20090807
  Receipt Date: 20090727
  Transmission Date: 20100115
  Serious: Yes (Life-Threatening)
  Sender: FDA-Public Use
  Company Number: NL-GENENTECH-288065

PATIENT
  Sex: Male

DRUGS (5)
  1. RITUXIMAB [Suspect]
     Indication: B-CELL LYMPHOMA
     Dosage: UNK
  2. DEXAMETHASONE [Suspect]
     Indication: B-CELL LYMPHOMA
     Dosage: UNK
  3. CISPLATIN [Suspect]
     Indication: B-CELL LYMPHOMA
     Dosage: UNK
  4. CYTARABINE [Suspect]
     Indication: B-CELL LYMPHOMA
     Dosage: UNK
  5. MTX [Suspect]
     Indication: B-CELL LYMPHOMA
     Dosage: UNK

REACTIONS (1)
  - MENINGITIS [None]
